FAERS Safety Report 8334563-0 (Version None)
Quarter: 2012Q2

REPORT INFORMATION
  Report Type: 
  Country: None (occurrence: None)
  Receive Date: 20120503
  Receipt Date: 20120427
  Transmission Date: 20120825
  Serious: Yes (Hospitalization)
  Sender: FDA-Public Use
  Company Number: US-FRI-1000030158

PATIENT
  Sex: Female

DRUGS (1)
  1. DALIRESP [Suspect]

REACTIONS (1)
  - HYPONATRAEMIA [None]
